FAERS Safety Report 5374914-2 (Version None)
Quarter: 2007Q2

REPORT INFORMATION
  Report Type: 
  Country: None (occurrence: None)
  Receive Date: 20070627
  Receipt Date: 20070627
  Transmission Date: 20071010
  Serious: Yes (Other)
  Sender: FDA-Public Use
  Company Number: None

PATIENT
  Age: 55 Year
  Sex: Female
  Weight: 62.5964 kg

DRUGS (1)
  1. SUBUTEX [Suspect]
     Indication: DRUG DETOXIFICATION
     Dosage: 1 MG. 1PER DAY SL
     Route: 060
     Dates: start: 20061030, end: 20070626

REACTIONS (5)
  - ABDOMINAL PAIN [None]
  - CRYING [None]
  - DRUG DEPENDENCE [None]
  - DRUG WITHDRAWAL SYNDROME [None]
  - HYPERHIDROSIS [None]
